FAERS Safety Report 18157516 (Version 1)
Quarter: 2020Q3

REPORT INFORMATION
  Report Type: Spontaneous
  Country: US (occurrence: US)
  Receive Date: 20200816
  Receipt Date: 20200816
  Transmission Date: 20201103
  Serious: Yes (Other)
  Sender: FDA-Public Use
  Company Number: None

PATIENT
  Age: 47 Year
  Sex: Female
  Weight: 73 kg

DRUGS (1)
  1. REMDESIVIR 100MG [Suspect]
     Active Substance: REMDESIVIR
     Indication: COVID-19
     Route: 042
     Dates: start: 20200815, end: 20200815

REACTIONS (5)
  - Anxiety [None]
  - Formication [None]
  - Infusion related reaction [None]
  - Burning sensation [None]
  - Dyspnoea [None]

NARRATIVE: CASE EVENT DATE: 20200815
